FAERS Safety Report 8810261 (Version 1)
Quarter: 2012Q4

REPORT INFORMATION
  Report Type: 
  Country: BR (occurrence: BR)
  Receive Date: 20120926
  Receipt Date: 20120926
  Transmission Date: 20130627
  Serious: Yes (Hospitalization, Other)
  Sender: FDA-Public Use
  Company Number: BR-009507513-1209BRA010199

PATIENT
  Age: 61 Year
  Sex: Male
  Weight: 69 kg

DRUGS (3)
  1. ZETIA [Suspect]
     Indication: BLOOD CHOLESTEROL INCREASED
     Dosage: UNK, qd
     Route: 048
     Dates: start: 2007
  2. CRESTOR [Concomitant]
     Indication: BLOOD CHOLESTEROL INCREASED
     Dosage: 10 mg, qd
     Route: 048
     Dates: start: 2007
  3. CRESTOR [Concomitant]
     Dosage: 20 mg, UNK
     Route: 048

REACTIONS (3)
  - Myocardial infarction [Recovered/Resolved]
  - Angioplasty [Unknown]
  - Stent placement [Unknown]
